FAERS Safety Report 12585553 (Version 1)
Quarter: 2016Q3

REPORT INFORMATION
  Report Type: Spontaneous
  Country: US (occurrence: US)
  Receive Date: 20160725
  Receipt Date: 20160725
  Transmission Date: 20161109
  Serious: No
  Sender: FDA-Public Use
  Company Number: US-AUROBINDO-AUR-APU-2015-05400

PATIENT
  Sex: Male

DRUGS (2)
  1. ALPRAZOLAM. [Suspect]
     Active Substance: ALPRAZOLAM
     Indication: NEURALGIA
     Route: 065
  2. XANAX XR [Suspect]
     Active Substance: ALPRAZOLAM
     Indication: NEURALGIA
     Route: 065

REACTIONS (2)
  - Off label use [Unknown]
  - Cardiac disorder [Unknown]
